FAERS Safety Report 17346918 (Version 2)
Quarter: 2020Q2

REPORT INFORMATION
  Report Type: Report from Study
  Country: US (occurrence: US)
  Receive Date: 20200129
  Receipt Date: 20200504
  Transmission Date: 20200713
  Serious: Yes (Hospitalization)
  Sender: FDA-Public Use
  Company Number: US-EXELIXIS-CABO-19022133

PATIENT
  Sex: Female

DRUGS (16)
  1. EFFIENT [Concomitant]
     Active Substance: PRASUGREL HYDROCHLORIDE
  2. MAGNESIUM [Concomitant]
     Active Substance: MAGNESIUM
  3. METOPROLOL. [Concomitant]
     Active Substance: METOPROLOL
  4. CABOMETYX [Suspect]
     Active Substance: CABOZANTINIB S-MALATE
     Indication: RENAL CELL CARCINOMA STAGE IV
     Dosage: 40 MG, QD
     Route: 048
     Dates: start: 20190502
  5. PROTONIX [Concomitant]
     Active Substance: PANTOPRAZOLE SODIUM
  6. TURMERIC [Concomitant]
     Active Substance: HERBALS\TURMERIC
  7. JANUMET [Concomitant]
     Active Substance: METFORMIN HYDROCHLORIDE\SITAGLIPTIN PHOSPHATE
  8. FENOFIBRIC ACID. [Concomitant]
     Active Substance: FENOFIBRIC ACID
  9. ZOLOFT [Concomitant]
     Active Substance: SERTRALINE HYDROCHLORIDE
  10. ASPRIN [Concomitant]
     Active Substance: ASPIRIN
  11. FISH OIL [Concomitant]
     Active Substance: FISH OIL
  12. ALBUTEROL. [Concomitant]
     Active Substance: ALBUTEROL
  13. ARTHROTEC [Concomitant]
     Active Substance: DICLOFENAC SODIUM\MISOPROSTOL
  14. CRESTOR [Concomitant]
     Active Substance: ROSUVASTATIN CALCIUM
  15. SUPER B COMPL [Concomitant]
  16. AMOXICILLIN. [Concomitant]
     Active Substance: AMOXICILLIN

REACTIONS (9)
  - Alopecia [Unknown]
  - Influenza [Not Recovered/Not Resolved]
  - Decreased appetite [Unknown]
  - Hair colour changes [Not Recovered/Not Resolved]
  - Dehydration [Not Recovered/Not Resolved]
  - Night sweats [Unknown]
  - Taste disorder [Not Recovered/Not Resolved]
  - Oropharyngeal pain [Unknown]
  - Dyspepsia [Unknown]

NARRATIVE: CASE EVENT DATE: 2019
